FAERS Safety Report 10707343 (Version 1)
Quarter: 2015Q1

REPORT INFORMATION
  Report Type: Spontaneous
  Country: US (occurrence: None)
  Receive Date: 20150112
  Receipt Date: 20150112
  Transmission Date: 20150721
  Serious: Yes (Other)
  Sender: FDA-Public Use
  Company Number: None

PATIENT
  Age: 38 Year
  Sex: Female

DRUGS (1)
  1. TECFIDERA [Suspect]
     Active Substance: DIMETHYL FUMARATE
     Indication: NERVOUS SYSTEM DISORDER
     Route: 048
     Dates: start: 20141001, end: 20141019

REACTIONS (3)
  - Gastric disorder [None]
  - Loss of consciousness [None]
  - Diarrhoea [None]

NARRATIVE: CASE EVENT DATE: 20141019
